FAERS Safety Report 6897075-7 (Version None)
Quarter: 2010Q3

REPORT INFORMATION
  Report Type: 
  Country: None (occurrence: None)
  Receive Date: 20100802
  Receipt Date: 20070330
  Transmission Date: 20110219
  Serious: No
  Sender: FDA-Public Use
  Company Number: US-PFIZER INC-2007025732

PATIENT
  Sex: Male

DRUGS (2)
  1. LYRICA [Suspect]
     Indication: DRUG TOLERANCE
  2. NEURONTIN [Suspect]
     Indication: DRUG TOLERANCE

REACTIONS (3)
  - DIZZINESS [None]
  - INSOMNIA [None]
  - SOMNOLENCE [None]
